FAERS Safety Report 23743482 (Version 1)
Quarter: 2024Q2

REPORT INFORMATION
  Report Type: Report from Study
  Country: ES (occurrence: ES)
  Receive Date: 20240415
  Receipt Date: 20240415
  Transmission Date: 20240716
  Serious: Yes (Other)
  Sender: FDA-Public Use
  Company Number: ES-002147023-NVSC2024ES063185

PATIENT
  Age: 70 Year
  Sex: Male

DRUGS (2)
  1. EVEROLIMUS [Suspect]
     Active Substance: EVEROLIMUS
     Indication: Gastrointestinal neuroendocrine carcinoma
     Dosage: UNK
     Route: 065
  2. SANDOSTATIN [Suspect]
     Active Substance: OCTREOTIDE ACETATE
     Indication: Gastrointestinal neuroendocrine carcinoma
     Dosage: UNK
     Route: 065

REACTIONS (3)
  - Gastrointestinal neuroendocrine carcinoma [Unknown]
  - Malignant neoplasm progression [Unknown]
  - Off label use [Unknown]
